FAERS Safety Report 6045775-3 (Version None)
Quarter: 2009Q1

REPORT INFORMATION
  Report Type: 
  Country: None (occurrence: None)
  Receive Date: 20090121
  Receipt Date: 20090114
  Transmission Date: 20090719
  Serious: Yes (Hospitalization)
  Sender: FDA-Public Use
  Company Number: CA-ASTRAZENECA-2008UW26655

PATIENT
  Age: 23223 Day
  Sex: Female
  Weight: 81.2 kg

DRUGS (4)
  1. CRESTOR [Suspect]
     Indication: HYPERLIPIDAEMIA
     Route: 048
     Dates: start: 20081120
  2. TYLENOL (CAPLET) [Concomitant]
     Indication: PAIN
     Dates: start: 20010101
  3. SYNTHROID [Concomitant]
     Indication: THYROID DISORDER
     Dosage: 0.112 MG DAILY
     Dates: start: 19981101
  4. GLUCOPHAGE [Concomitant]
     Indication: DIABETES MELLITUS
     Dates: start: 20081126

REACTIONS (4)
  - BREAST SWELLING [None]
  - DYSPNOEA [None]
  - GASTROENTERITIS [None]
  - LOCAL SWELLING [None]
